FAERS Safety Report 18470584 (Version 1)
Quarter: 2020Q4

REPORT INFORMATION
  Report Type: Spontaneous
  Country: US (occurrence: US)
  Receive Date: 20201105
  Receipt Date: 20201105
  Transmission Date: 20210114
  Serious: Yes (Other)
  Sender: FDA-Public Use
  Company Number: US-PURDUE-USA-2020-0156760

PATIENT
  Sex: Female

DRUGS (7)
  1. SOMA [Suspect]
     Active Substance: CARISOPRODOL
     Indication: PAIN MANAGEMENT
     Dosage: UNK
     Route: 048
  2. OXYCODONE HYDROCHLORIDE (SIMILAR TO NDA 22-272) [Suspect]
     Active Substance: OXYCODONE HYDROCHLORIDE
     Indication: PAIN MANAGEMENT
     Dosage: 15 MG, UNK
     Route: 048
  3. XANAX [Suspect]
     Active Substance: ALPRAZOLAM
     Indication: PAIN MANAGEMENT
     Dosage: UNKNOWN
     Route: 048
  4. OXYCONTIN [Suspect]
     Active Substance: OXYCODONE HYDROCHLORIDE
     Indication: PAIN MANAGEMENT
     Dosage: 40 MG, UNK
     Route: 048
     Dates: start: 2009
  5. FENTANYL. [Suspect]
     Active Substance: FENTANYL
     Indication: PAIN MANAGEMENT
     Dosage: 50 MG, UNK
     Route: 062
  6. OXYCONTIN [Suspect]
     Active Substance: OXYCODONE HYDROCHLORIDE
     Dosage: 80 UNK, UNK
     Route: 048
  7. XANAX [Suspect]
     Active Substance: ALPRAZOLAM
     Dosage: 1 MG, UNK
     Route: 048
     Dates: start: 2009

REACTIONS (2)
  - Drug dependence [Unknown]
  - Personality change [Unknown]
